FAERS Safety Report 7986014-3 (Version None)
Quarter: 2011Q4

REPORT INFORMATION
  Report Type: 
  Country: None (occurrence: None)
  Receive Date: 20111216
  Receipt Date: 20111207
  Transmission Date: 20120403
  Serious: Yes (Other)
  Sender: FDA-Public Use
  Company Number: US-MILLENNIUM PHARMACEUTICALS, INC.-2011-06248

PATIENT
  Sex: Male
  Weight: 98.413 kg

DRUGS (2)
  1. VELCADE [Suspect]
     Dosage: 2.2 MG, UNK
     Route: 058
     Dates: start: 20111114, end: 20111117
  2. VELCADE [Suspect]
     Indication: MULTIPLE MYELOMA
     Dosage: 2.2 MG, UNK
     Route: 042
     Dates: start: 20110320

REACTIONS (5)
  - INJECTION SITE PAIN [None]
  - INJECTION SITE NECROSIS [None]
  - OFF LABEL USE [None]
  - INJECTION SITE ERYTHEMA [None]
  - INJECTION SITE IRRITATION [None]
